FAERS Safety Report 5990004-X (Version None)
Quarter: 2008Q4

REPORT INFORMATION
  Report Type: 
  Country: None (occurrence: None)
  Receive Date: 20081209
  Receipt Date: 20081209
  Transmission Date: 20090506
  Serious: Yes (Other)
  Sender: FDA-Public Use
  Company Number: None

PATIENT
  Sex: Female
  Weight: 98.4306 kg

DRUGS (6)
  1. PALIPERIDONE 6 MG JANSSEN [Suspect]
     Indication: BIPOLAR I DISORDER
     Dosage: 6 MG HS PO
     Route: 048
     Dates: start: 20080119, end: 20080311
  2. HALOPERIDOL [Concomitant]
  3. BENZTROPINE MESYLATE [Concomitant]
  4. DEPAKOTE [Concomitant]
  5. LEVOTHYROXINE SODIUM [Concomitant]
  6. OMEPRAZOLE [Concomitant]

REACTIONS (2)
  - BREAST TENDERNESS [None]
  - HYPERPROLACTINAEMIA [None]
